FAERS Safety Report 19861244 (Version 2)
Quarter: 2025Q2

REPORT INFORMATION
  Report Type: Report from Study
  Country: MX (occurrence: MX)
  Receive Date: 20210920
  Receipt Date: 20250402
  Transmission Date: 20250716
  Serious: Yes (Other)
  Sender: NOVARTIS
  Company Number: MX-NOVARTISPH-NVSC2021MX090015

PATIENT
  Sex: Male
  Weight: 115 kg

DRUGS (11)
  1. ENTRESTO [Suspect]
     Active Substance: SACUBITRIL\VALSARTAN
     Indication: Dilated cardiomyopathy
     Dosage: 1 DOSAGE FORM, BID, STARTED 6 YEARS AGO
     Route: 048
  2. ENTRESTO [Suspect]
     Active Substance: SACUBITRIL\VALSARTAN
     Dosage: 1 DOSAGE FORM (200 MG), TWICE DAILY / IN THE MORNING AND AT NIGHTBID
     Route: 048
     Dates: start: 2015
  3. METOPROLOL [Suspect]
     Active Substance: METOPROLOL
     Indication: Cardiac disorder
     Dosage: 95 MG, QD IN THE MORNING (STARTED 6 YEARS AGO)
     Route: 048
  4. XIGDUO XR [Concomitant]
     Active Substance: DAPAGLIFLOZIN PROPANEDIOL\METFORMIN HYDROCHLORIDE
     Indication: Diabetes mellitus
     Dosage: UNK UNK, BID (1 IN THE MORNING AND 0.5 AT NIGHT) STARTED 6 YEARS AGO
     Route: 048
  5. IVABRADINE [Concomitant]
     Active Substance: IVABRADINE
     Indication: Cardiac disorder
     Dosage: 5 MG, BID (IN THE MORNING AND IN THE NIGHT) STARTED 6 YEARS AGO
     Route: 048
  6. PROPAFENONE HYDROCHLORIDE [Concomitant]
     Active Substance: PROPAFENONE HYDROCHLORIDE
     Indication: Tachycardia
     Dosage: 150 MG, QD (AT NOON) STARTED 6 YEARS AGO
     Route: 048
  7. SPIRONOLACTONE [Concomitant]
     Active Substance: SPIRONOLACTONE
     Indication: Prophylaxis
     Dosage: 25 MG, QD (AT NOON) STARTED 6 YEARS AGO
     Route: 048
  8. PANTOPRAZOLE [Concomitant]
     Active Substance: PANTOPRAZOLE
     Indication: Prophylaxis
     Dosage: 40 MG, QD (AT NIGHT) STARTED 6 YEARS AGO
     Route: 048
  9. ALLOPURINOL [Concomitant]
     Active Substance: ALLOPURINOL
     Indication: Hyperuricaemia
     Dosage: 100 MG, QD (AT NOON) STARTED 6 YEARS AGO
     Route: 048
  10. ASPIRIN [Concomitant]
     Active Substance: ASPIRIN
     Indication: Prophylaxis
     Dosage: 100 MG, QD (AT NIGHT) STARTED 6 YEARS AGO
     Route: 048
  11. ATORVASTATIN [Concomitant]
     Active Substance: ATORVASTATIN
     Indication: Prophylaxis
     Dosage: 20 MG, QD (AT NIGHT) STARTED 6 YEARS AGO
     Route: 048

REACTIONS (3)
  - Diabetic foot [Recovered/Resolved]
  - Limb injury [Recovered/Resolved]
  - Product use in unapproved indication [Unknown]

NARRATIVE: CASE EVENT DATE: 20150101
